FAERS Safety Report 16153685 (Version 1)
Quarter: 2019Q2

REPORT INFORMATION
  Report Type: Spontaneous
  Country: ES (occurrence: ES)
  Receive Date: 20190403
  Receipt Date: 20190403
  Transmission Date: 20190711
  Serious: Yes (Death, Other)
  Sender: FDA-Public Use
  Company Number: ES-AUROBINDO-AUR-APL-2019-017564

PATIENT

DRUGS (11)
  1. LORMETAZEPAM [Concomitant]
     Active Substance: LORMETAZEPAM
     Indication: PROPHYLAXIS
     Dosage: 1 MILLIGRAM, DAILY
     Route: 048
  2. CLARITHROMYCIN. [Suspect]
     Active Substance: CLARITHROMYCIN
     Dosage: 500 MILLIGRAM, DAILY
     Route: 048
     Dates: start: 20190125
  3. DEXAMETHASONE. [Suspect]
     Active Substance: DEXAMETHASONE
     Dosage: 16 MILLIGRAM, EVERY WEEK (2.2857 MILLIGRAM )
     Route: 048
     Dates: start: 20190125
  4. COLECALCIFEROL [Concomitant]
     Active Substance: CHOLECALCIFEROL
     Indication: OSTEOPOROSIS
     Dosage: 1 UNK, DAILY (2.5/880 G/UI)
     Route: 048
  5. CLARITHROMYCIN. [Suspect]
     Active Substance: CLARITHROMYCIN
     Indication: PLASMA CELL MYELOMA
     Dosage: 250 MILLIGRAM
     Route: 048
     Dates: start: 20180417
  6. DEXAMETHASONE. [Suspect]
     Active Substance: DEXAMETHASONE
     Indication: PLASMA CELL MYELOMA
     Dosage: 16 MILLIGRAM
     Route: 048
     Dates: start: 20180417
  7. REVLIMID [Suspect]
     Active Substance: LENALIDOMIDE
     Dosage: 25 MILLIGRAM, DAILY
     Route: 048
     Dates: start: 20190125
  8. ACETYLSALICYLIC ACID [Concomitant]
     Active Substance: ASPIRIN
     Indication: THROMBOSIS PROPHYLAXIS
     Dosage: 100 MILLIGRAM, DAILY
     Route: 048
  9. REVLIMID [Suspect]
     Active Substance: LENALIDOMIDE
     Indication: PLASMA CELL MYELOMA
     Dosage: 20 MILLIGRAM
     Route: 048
     Dates: start: 20180417
  10. HYDROXYZINE [Concomitant]
     Active Substance: HYDROXYZINE HYDROCHLORIDE
     Indication: PRURITUS
     Dosage: 25 MILLIGRAM, DAILY
     Route: 048
  11. OMEPRAZOLE. [Concomitant]
     Active Substance: OMEPRAZOLE
     Indication: PROPHYLAXIS AGAINST GASTROINTESTINAL ULCER
     Dosage: 20 MILLIGRAM, ONCE A DAY
     Route: 048

REACTIONS (1)
  - Sudden death [Fatal]

NARRATIVE: CASE EVENT DATE: 20190210
